FAERS Safety Report 5699893-X (Version None)
Quarter: 2008Q2

REPORT INFORMATION
  Report Type: 
  Country: None (occurrence: None)
  Receive Date: 20080410
  Receipt Date: 20080401
  Transmission Date: 20081010
  Serious: Yes (Death, Hospitalization)
  Sender: FDA-Public Use
  Company Number: AT-MERCK-0804AUT00008

PATIENT
  Age: 50 Year
  Sex: Female

DRUGS (6)
  1. CANCIDAS [Suspect]
     Indication: CANDIDIASIS
     Route: 041
     Dates: start: 20040101, end: 20040101
  2. CANCIDAS [Suspect]
     Indication: ABDOMINAL INFECTION
     Route: 041
     Dates: start: 20040101, end: 20040101
  3. TACROLIMUS [Concomitant]
     Route: 065
  4. SIROLIMUS [Concomitant]
     Route: 065
  5. PREDNISOLONE [Concomitant]
     Route: 065
  6. ANTILYMPHOCYTE IMMUNOGLOBULIN [Concomitant]
     Route: 065

REACTIONS (1)
  - MULTI-ORGAN FAILURE [None]
